FAERS Safety Report 7060389-4 (Version None)
Quarter: 2010Q4

REPORT INFORMATION
  Report Type: 
  Country: None (occurrence: None)
  Receive Date: 20101025
  Receipt Date: 20101014
  Transmission Date: 20110411
  Serious: Yes (Other)
  Sender: FDA-Public Use
  Company Number: US-ASTRAZENECA-2010SE30116

PATIENT
  Age: 78 Year
  Sex: Male
  Weight: 93 kg

DRUGS (14)
  1. SYMBICORT [Suspect]
     Indication: CHRONIC OBSTRUCTIVE PULMONARY DISEASE
     Dosage: 320/ 9 MCG, TWO TIMES A DAY
     Route: 055
     Dates: start: 20100606, end: 20100626
  2. SYMBICORT [Suspect]
     Indication: ASBESTOSIS
     Dosage: 320/ 9 MCG, TWO TIMES A DAY
     Route: 055
     Dates: start: 20100606, end: 20100626
  3. ATENOLOL [Concomitant]
  4. ROSUVASTATIN [Concomitant]
  5. SPIRIVA [Concomitant]
  6. FLUTICASONE PROPIONATE [Concomitant]
  7. LOSARTAN [Concomitant]
  8. FEXOFENADINE HCL [Concomitant]
  9. ALBUTEROL [Concomitant]
  10. GLIPIZIDE [Concomitant]
  11. FUROSEMIDE [Concomitant]
  12. FERROUS SULFATE [Concomitant]
  13. GUAIFENESIN [Concomitant]
  14. CALCIUM [Concomitant]

REACTIONS (5)
  - ASBESTOSIS [None]
  - BRONCHITIS CHRONIC [None]
  - CHRONIC OBSTRUCTIVE PULMONARY DISEASE [None]
  - EMPHYSEMA [None]
  - PNEUMONIA [None]
